FAERS Safety Report 4679962-3 (Version None)
Quarter: 2005Q2

REPORT INFORMATION
  Report Type: 
  Country: None (occurrence: None)
  Receive Date: 20050531
  Receipt Date: 20050519
  Transmission Date: 20051028
  Serious: Yes (Life-Threatening)
  Sender: FDA-Public Use
  Company Number: 2005-01-0748

PATIENT
  Age: 37 Year
  Sex: Male
  Weight: 48 kg

DRUGS (6)
  1. REBETOL [Suspect]
     Indication: HEPATITIS C
     Dosage: 600-400* MG ORAL
     Route: 048
     Dates: start: 20041213, end: 20050104
  2. REBETOL [Suspect]
     Indication: HEPATITIS C
     Dosage: 600-400* MG ORAL
     Route: 048
     Dates: start: 20050105, end: 20050112
  3. INTRON A [Suspect]
     Indication: HEPATITIS C
     Dosage: 10 MIU QD INTRAMUSCULAR
     Route: 030
     Dates: start: 20041213, end: 20041226
  4. PEG-INTRON [Suspect]
     Indication: HEPATITIS C
     Dosage: 72-36* MCG QW SUBCUTANEOUS
     Route: 058
     Dates: start: 20041227, end: 20050105
  5. PEG-INTRON [Suspect]
     Indication: HEPATITIS C
     Dosage: 72-36* MCG QW SUBCUTANEOUS
     Route: 058
     Dates: start: 20050112, end: 20050112
  6. BAKTAR [Concomitant]

REACTIONS (11)
  - ANAEMIA [None]
  - DYSPNOEA [None]
  - HAEMATOCRIT DECREASED [None]
  - HAEMOGLOBIN DECREASED [None]
  - NAUSEA [None]
  - PCO2 DECREASED [None]
  - PHARYNGOLARYNGEAL PAIN [None]
  - PRODUCTIVE COUGH [None]
  - RENAL TUBULAR ACIDOSIS [None]
  - RHINORRHOEA [None]
  - TACHYPNOEA [None]
